FAERS Safety Report 14667834 (Version 2)
Quarter: 2018Q2

REPORT INFORMATION
  Report Type: Spontaneous
  Country: US (occurrence: US)
  Receive Date: 20180322
  Receipt Date: 20180507
  Transmission Date: 20180711
  Serious: No
  Sender: FDA-Public Use
  Company Number: US-PFIZER INC-2018118550

PATIENT
  Sex: Male

DRUGS (1)
  1. ADVIL [Suspect]
     Active Substance: IBUPROFEN
     Dosage: UNK

REACTIONS (2)
  - Product packaging quantity issue [Unknown]
  - Poor quality drug administered [Unknown]
